FAERS Safety Report 8113688-9 (Version None)
Quarter: 2012Q1

REPORT INFORMATION
  Report Type: 
  Country: None (occurrence: None)
  Receive Date: 20120203
  Receipt Date: 20120126
  Transmission Date: 20120608
  Serious: Yes (Life-Threatening, Hospitalization, Other)
  Sender: FDA-Public Use
  Company Number: DE-JNJFOC-20111007274

PATIENT
  Sex: Female

DRUGS (2)
  1. STELARA [Suspect]
     Indication: CROHN'S DISEASE
     Route: 058
     Dates: start: 20100401
  2. HUMIRA [Suspect]
     Indication: CROHN'S DISEASE
     Route: 065

REACTIONS (3)
  - OFF LABEL USE [None]
  - MALIGNANT MELANOMA [None]
  - THERAPEUTIC RESPONSE UNEXPECTED [None]
